FAERS Safety Report 15720762 (Version 2)
Quarter: 2019Q1

REPORT INFORMATION
  Report Type: Spontaneous
  Country: GB (occurrence: GB)
  Receive Date: 20181213
  Receipt Date: 20190201
  Transmission Date: 20190417
  Serious: Yes (Other)
  Sender: FDA-Public Use
  Company Number: GB-CONCORDIA PHARMACEUTICALS INC.-E2B_00017756

PATIENT
  Age: 43 Year
  Sex: Male
  Weight: 80.28 kg

DRUGS (1)
  1. PREDNISOLONE. [Suspect]
     Active Substance: PREDNISOLONE
     Indication: DYSPNOEA
     Dosage: IN THE MORNING
     Route: 048
     Dates: start: 20181114

REACTIONS (7)
  - Tearfulness [Unknown]
  - Dizziness [Recovering/Resolving]
  - Ocular discomfort [Not Recovered/Not Resolved]
  - Euphoric mood [Unknown]
  - Headache [Unknown]
  - Mood swings [Unknown]
  - Disorientation [Unknown]

NARRATIVE: CASE EVENT DATE: 20181114
